FAERS Safety Report 25050744 (Version 2)
Quarter: 2025Q1

REPORT INFORMATION
  Report Type: Spontaneous
  Country: IT (occurrence: IT)
  Receive Date: 20250307
  Receipt Date: 20250314
  Transmission Date: 20250408
  Serious: Yes (Death, Hospitalization)
  Sender: UCB
  Company Number: IT-UCBSA-2025013280

PATIENT
  Age: 83 Year
  Sex: Female

DRUGS (2)
  1. KEPPRA [Suspect]
     Active Substance: LEVETIRACETAM
     Indication: Epilepsy
     Route: 048
  2. KEPPRA [Suspect]
     Active Substance: LEVETIRACETAM
     Dates: start: 202406, end: 20240609

REACTIONS (3)
  - Epilepsy [Fatal]
  - Enteral nutrition [Unknown]
  - Off label use [Unknown]
